FAERS Safety Report 6425410-2 (Version None)
Quarter: 2009Q4

REPORT INFORMATION
  Report Type: 
  Country: None (occurrence: None)
  Receive Date: 20091102
  Receipt Date: 20091102
  Transmission Date: 20100525
  Serious: Yes (Hospitalization)
  Sender: FDA-Public Use
  Company Number: None

PATIENT
  Age: 64 Year
  Sex: Male
  Weight: 97.8 kg

DRUGS (4)
  1. ASPIRIN [Suspect]
     Indication: CORONARY ARTERIAL STENT INSERTION
     Dosage: 6-8 TAB EVERY DAY PO
     Route: 048
     Dates: start: 20050715, end: 20091028
  2. ASPIRIN [Suspect]
     Indication: PROPHYLAXIS
     Dosage: 6-8 TAB EVERY DAY PO
     Route: 048
     Dates: start: 20050715, end: 20091028
  3. ASPIRIN [Suspect]
     Indication: CORONARY ARTERIAL STENT INSERTION
     Dosage: 6-8 TAB EVERY DAY PO
     Route: 048
     Dates: start: 20050715, end: 20091028
  4. ASPIRIN [Suspect]
     Indication: PROPHYLAXIS
     Dosage: 6-8 TAB EVERY DAY PO
     Route: 048
     Dates: start: 20050715, end: 20091028

REACTIONS (1)
  - GASTRIC HAEMORRHAGE [None]
